FAERS Safety Report 5823928-4 (Version None)
Quarter: 2008Q3

REPORT INFORMATION
  Report Type: 
  Country: None (occurrence: None)
  Receive Date: 20080724
  Receipt Date: 20080717
  Transmission Date: 20090109
  Serious: Yes (Hospitalization)
  Sender: FDA-Public Use
  Company Number: 2008SP014055

PATIENT
  Age: 55 Year
  Sex: Female
  Weight: 54 kg

DRUGS (5)
  1. TEMOZOLOMIDE [Suspect]
     Indication: GLIOBLASTOMA MULTIFORME
     Dosage: 150 MG/M2; PO
     Route: 048
     Dates: start: 20080522, end: 20080526
  2. COUMADIN (CON.) [Concomitant]
  3. DECADRON (CON.) [Concomitant]
  4. GLYBURIDE (CON.) [Concomitant]
  5. TOPAMAX (CON.) [Concomitant]

REACTIONS (3)
  - CONVULSION [None]
  - DYSPNOEA [None]
  - PNEUMONIA ASPIRATION [None]
